FAERS Safety Report 8454889-X (Version None)
Quarter: 2012Q2

REPORT INFORMATION
  Report Type: 
  Country: None (occurrence: None)
  Receive Date: 20120615
  Receipt Date: 20120615
  Transmission Date: 20120825
  Serious: Yes (Other)
  Sender: FDA-Public Use
  Company Number: None

PATIENT
  Age: 43 Year
  Sex: Female
  Weight: 81.6475 kg

DRUGS (1)
  1. NITROFURANTOIN [Suspect]
     Dosage: 100 MG 2X DAILY
     Dates: start: 20120521

REACTIONS (2)
  - SEDATION [None]
  - FEELING ABNORMAL [None]
